FAERS Safety Report 11087091 (Version 1)
Quarter: 2015Q2

REPORT INFORMATION
  Report Type: Spontaneous
  Country: US (occurrence: None)
  Receive Date: 20150501
  Receipt Date: 20150501
  Transmission Date: 20150821
  Serious: No
  Sender: FDA-Public Use
  Company Number: None

PATIENT
  Age: 57 Year
  Sex: Female
  Weight: 52.62 kg

DRUGS (3)
  1. LIALDA [Concomitant]
     Active Substance: MESALAMINE
  2. VITAMIN D [Concomitant]
     Active Substance: CHOLECALCIFEROL
  3. MAGNEVIST [Suspect]
     Active Substance: GADOPENTETATE DIMEGLUMINE
     Indication: NUCLEAR MAGNETIC RESONANCE IMAGING
     Dosage: WITH MRI

REACTIONS (6)
  - Dysgeusia [None]
  - Immediate post-injection reaction [None]
  - Cyst [None]
  - Oropharyngeal pain [None]
  - Lip disorder [None]
  - Night sweats [None]

NARRATIVE: CASE EVENT DATE: 20150414
